FAERS Safety Report 4845679-5 (Version None)
Quarter: 2005Q4

REPORT INFORMATION
  Report Type: 
  Country: None (occurrence: None)
  Receive Date: 20051206
  Receipt Date: 20051101
  Transmission Date: 20060501
  Serious: No
  Sender: FDA-Public Use
  Company Number: FI-BOEHRINGER INGELHEIM PHARMACEUTICALS, INC.-2005-BP-19911YA

PATIENT
  Age: 81 Year
  Sex: Male

DRUGS (8)
  1. TAMSULOSIN HCL [Suspect]
     Route: 048
  2. ALLOPURINOL [Concomitant]
  3. FERROUS SULFATE TAB [Concomitant]
  4. FOLIC ACID [Concomitant]
  5. WARFARIN SODIUM [Concomitant]
  6. PHENYLEPHRINE HYDROCHLORIDE [Concomitant]
     Indication: MYDRIASIS
     Route: 031
  7. TROPICAMIDE [Concomitant]
     Indication: MYDRIASIS
     Route: 031
  8. PROPANOLOL HYDROCHLORIDE [Concomitant]

REACTIONS (2)
  - IRIDOCELE [None]
  - IRIS ATROPHY [None]
